FAERS Safety Report 24212851 (Version 1)
Quarter: 2024Q3

REPORT INFORMATION
  Report Type: Report from Study
  Country: JP (occurrence: None)
  Receive Date: 20240815
  Receipt Date: 20240815
  Transmission Date: 20241016
  Serious: Yes (Hospitalization)
  Sender: ASTRAZENECA
  Company Number: 2023A064734

PATIENT
  Age: 17 Year
  Sex: Female
  Weight: 53.2 kg

DRUGS (3)
  1. KOSELUGO [Suspect]
     Active Substance: SELUMETINIB
     Indication: Neurofibroma
     Dosage: BASICALLY ON AN EMPTY STOMACH
     Route: 048
     Dates: start: 20230219, end: 20230221
  2. KOSELUGO [Suspect]
     Active Substance: SELUMETINIB
     Indication: Neurofibroma
     Dosage: BASICALLY ON AN EMPTY STOMACH
     Route: 048
     Dates: start: 20230305, end: 20230321
  3. KOSELUGO [Suspect]
     Active Substance: SELUMETINIB
     Indication: Neurofibroma
     Dosage: BASICALLY ON AN EMPTY STOMACH
     Route: 048
     Dates: start: 20230724, end: 20230725

REACTIONS (1)
  - Moyamoya disease [Recovered/Resolved]

NARRATIVE: CASE EVENT DATE: 20230221
